FAERS Safety Report 10039958 (Version 1)
Quarter: 2014Q1

REPORT INFORMATION
  Report Type: Spontaneous
  Country: DE (occurrence: DE)
  Receive Date: 20140326
  Receipt Date: 20140326
  Transmission Date: 20141002
  Serious: Yes (Other)
  Sender: FDA-Public Use
  Company Number: PHHY2014DE031709

PATIENT
  Age: 41 Year
  Sex: Male

DRUGS (3)
  1. METFORMIN [Suspect]
     Indication: TYPE 2 DIABETES MELLITUS
  2. INSULIN [Suspect]
     Indication: TYPE 2 DIABETES MELLITUS
  3. PREDNISOLONE [Concomitant]
     Indication: DEAFNESS NEUROSENSORY
     Dosage: 250 MG, QD

REACTIONS (15)
  - Drug-induced liver injury [Unknown]
  - Hepatic steatosis [Unknown]
  - Jaundice [Unknown]
  - Aspartate aminotransferase increased [Unknown]
  - Blood alkaline phosphatase increased [Unknown]
  - Alanine aminotransferase increased [Unknown]
  - Blood bilirubin increased [Unknown]
  - Gamma-glutamyltransferase increased [Unknown]
  - Fatigue [Unknown]
  - Chromaturia [Unknown]
  - Faeces discoloured [Unknown]
  - Pruritus [Recovered/Resolved]
  - Rash [Recovered/Resolved]
  - Scleral discolouration [Unknown]
  - Eosinophilia [Unknown]
